FAERS Safety Report 5244069-3 (Version None)
Quarter: 2007Q1

REPORT INFORMATION
  Report Type: 
  Country: None (occurrence: None)
  Receive Date: 20070222
  Receipt Date: 20070219
  Transmission Date: 20070707
  Serious: Yes (Death)
  Sender: FDA-Public Use
  Company Number: PHBS2007NL02172

PATIENT
  Age: 78 Year
  Sex: Male
  Weight: 70 kg

DRUGS (9)
  1. SYMMETREL [Concomitant]
     Dosage: 100 MG, QD
     Dates: start: 19900101
  2. OXAZEPAMUM [Concomitant]
     Dosage: 10 MG, BID
     Dates: start: 20061220
  3. PANTOZOL [Concomitant]
     Dosage: 40 MG
     Dates: start: 19900101
  4. MAALOX PLUS /NET/ [Concomitant]
     Dosage: 1 DF, BID
     Dates: start: 19900101
  5. SELEGILINE HYDROCHLORIDE [Concomitant]
     Dosage: 5 MG, BID
     Dates: start: 19900101
  6. FLUDROCORTISONE [Concomitant]
     Dates: start: 20070105
  7. ASCAL [Concomitant]
     Dosage: 100 MG, QD
     Dates: start: 19900101
  8. PERMAX [Concomitant]
     Dosage: 5 MG/DAY
     Dates: start: 19900101
  9. COMTAN [Suspect]
     Indication: PARKINSON'S DISEASE
     Dosage: 200 MG, 6QD
     Dates: start: 20061201

REACTIONS (22)
  - APNOEA [None]
  - AUTONOMIC NERVOUS SYSTEM IMBALANCE [None]
  - BLOOD CREATINE PHOSPHOKINASE INCREASED [None]
  - BLOOD CULTURE POSITIVE [None]
  - BRADYCARDIA [None]
  - CONSTIPATION [None]
  - DEPRESSED LEVEL OF CONSCIOUSNESS [None]
  - HYPERKINESIA [None]
  - HYPERTHERMIA [None]
  - HYPOTENSION [None]
  - ILEUS PARALYTIC [None]
  - LIVER FUNCTION TEST ABNORMAL [None]
  - LOSS OF CONSCIOUSNESS [None]
  - MULTI-ORGAN FAILURE [None]
  - NORMOCHROMIC NORMOCYTIC ANAEMIA [None]
  - PNEUMONIA [None]
  - PYREXIA [None]
  - RENAL FUNCTION TEST ABNORMAL [None]
  - SEPSIS [None]
  - STREPTOCOCCAL BACTERAEMIA [None]
  - STREPTOCOCCAL INFECTION [None]
  - URINARY TRACT INFECTION [None]
